FAERS Safety Report 9861047 (Version 2)
Quarter: 2014Q1

REPORT INFORMATION
  Report Type: Spontaneous
  Country: NZ (occurrence: NZ)
  Receive Date: 20140202
  Receipt Date: 20140202
  Transmission Date: 20141002
  Serious: No
  Sender: FDA-Public Use
  Company Number: NZ-ALLERGAN-1303052US

PATIENT
  Age: 44 Year
  Sex: Female

DRUGS (1)
  1. BOTOX [Suspect]
     Indication: SKIN WRINKLING
     Dosage: 24 UNITS, SINGLE
     Route: 030
     Dates: start: 20130213, end: 20130213

REACTIONS (2)
  - Injection site bruising [Recovering/Resolving]
  - Vision blurred [Recovered/Resolved]
